FAERS Safety Report 14773513 (Version 5)
Quarter: 2018Q2

REPORT INFORMATION
  Report Type: Spontaneous
  Country: BR (occurrence: BR)
  Receive Date: 20180418
  Receipt Date: 20180621
  Transmission Date: 20180711
  Serious: Yes (Hospitalization)
  Sender: FDA-Public Use
  Company Number: BR-GLAXOSMITHKLINE-BR2018GSK057676

PATIENT
  Age: 7 Year
  Sex: Male
  Weight: 31 kg

DRUGS (2)
  1. ZINNAT [Suspect]
     Active Substance: CEFUROXIME AXETIL
     Indication: SINUSITIS
     Dosage: 5 ML, BID
     Route: 048
     Dates: start: 20180326, end: 20180331
  2. ZINNAT [Suspect]
     Active Substance: CEFUROXIME AXETIL
     Dosage: UNK

REACTIONS (6)
  - White blood cell count increased [Unknown]
  - Pyrexia [Unknown]
  - Overdose [Unknown]
  - Product quality issue [Unknown]
  - Drug ineffective [Unknown]
  - Product prescribing issue [Recovered/Resolved]
